FAERS Safety Report 25062003 (Version 1)
Quarter: 2025Q1

REPORT INFORMATION
  Report Type: Spontaneous
  Country: HU (occurrence: HU)
  Receive Date: 20250311
  Receipt Date: 20250311
  Transmission Date: 20250408
  Serious: Yes (Death, Other)
  Sender: CELLTRION
  Company Number: None

PATIENT

DRUGS (7)
  1. VEGZELMA [Suspect]
     Active Substance: BEVACIZUMAB-ADCD
     Indication: Colon cancer
     Dates: start: 20240603
  2. VEGZELMA [Suspect]
     Active Substance: BEVACIZUMAB-ADCD
     Route: 042
     Dates: start: 20240704, end: 20240704
  3. CAPECITABINE [Concomitant]
     Active Substance: CAPECITABINE
     Indication: Adenocarcinoma of colon
     Dates: start: 20240704
  4. ATROPINE SULFATE [Concomitant]
     Active Substance: ATROPINE SULFATE
     Indication: Premedication
     Dates: start: 20240704, end: 20240704
  5. ONDANSETRON HYDROCHLORIDE [Concomitant]
     Active Substance: ONDANSETRON HYDROCHLORIDE
     Indication: Adenocarcinoma of colon
     Dates: start: 20240704, end: 20240704
  6. IRINOTECAN [Concomitant]
     Active Substance: IRINOTECAN
     Indication: Adenocarcinoma of colon
     Route: 042
     Dates: start: 20240704, end: 20240704
  7. SOLU-MEDROL [Concomitant]
     Active Substance: METHYLPREDNISOLONE SODIUM SUCCINATE
     Indication: Premedication
     Dates: start: 20240704, end: 20240704

REACTIONS (6)
  - Respiratory failure [Fatal]
  - Cor pulmonale chronic [Fatal]
  - Metastases to lung [Fatal]
  - Metastases to liver [Fatal]
  - Haemoptysis [Fatal]
  - Intentional product use issue [Unknown]

NARRATIVE: CASE EVENT DATE: 20240705
